FAERS Safety Report 20672955 (Version 11)
Quarter: 2022Q3

REPORT INFORMATION
  Report Type: Spontaneous
  Country: GB (occurrence: GB)
  Receive Date: 20220405
  Receipt Date: 20220909
  Transmission Date: 20221026
  Serious: Yes (Other)
  Sender: FDA-Public Use
  Company Number: GB-MYLANLABS-2019M1001004

PATIENT
  Sex: Male

DRUGS (39)
  1. OLANZAPINE [Suspect]
     Active Substance: OLANZAPINE
     Indication: Schizophrenia
     Dosage: 20 MILLIGRAM, QD(20 MILLIGRAM, ONCE A DAY, HS, (20 MG EVERY NIGHT))
     Route: 065
  2. OLANZAPINE [Suspect]
     Active Substance: OLANZAPINE
     Dosage: UNK
     Route: 065
  3. OLANZAPINE [Suspect]
     Active Substance: OLANZAPINE
     Dosage: 20 MILLIGRAM, HS (20 MG, HS(20 MILLIGRAM, QD))
     Route: 065
  4. OLANZAPINE [Suspect]
     Active Substance: OLANZAPINE
     Dosage: UNK
     Route: 065
  5. FLUPENTIXOL [Suspect]
     Active Substance: FLUPENTIXOL
     Indication: Schizophrenia
     Dosage: 200 MILLIGRAM, Q2W(200 MILLIGRAM, 0.5 WEEK, EVERY 2 WEEKS)
     Route: 065
  6. FLUPENTIXOL [Suspect]
     Active Substance: FLUPENTIXOL
     Dosage: 200 MILLIGRAM, Q2W(200 MILLIGRAM, EVERY 2 WEEKS (200 MILLIGRAM, Q2W)
     Route: 065
  7. FLUPENTIXOL [Suspect]
     Active Substance: FLUPENTIXOL
     Dosage: 200 MILLIGRAM, Q2W(200 MILLIGRAM, 0.5 WEEK, EVERY 2 WEEKS)
     Route: 065
  8. FLUPENTIXOL [Suspect]
     Active Substance: FLUPENTIXOL
     Dosage: UNK
     Route: 065
  9. FLUPENTIXOL [Suspect]
     Active Substance: FLUPENTIXOL
     Dosage: 200 MILLIGRAM (200 MG, UNK)
     Route: 065
  10. CODEINE PHOSPHATE [Suspect]
     Active Substance: CODEINE PHOSPHATE
     Indication: Schizophrenia
     Dosage: 15 MILLIGRAM, PRN, AS NECESSARY
     Route: 065
  11. CODEINE PHOSPHATE [Suspect]
     Active Substance: CODEINE PHOSPHATE
     Dosage: UNK
     Route: 065
  12. CODEINE PHOSPHATE [Suspect]
     Active Substance: CODEINE PHOSPHATE
     Dosage: UNK
     Route: 065
  13. CODEINE PHOSPHATE [Suspect]
     Active Substance: CODEINE PHOSPHATE
     Dosage: 15 MILLIGRAM, PRN, (PRN, 1 AS NECESSARY)
     Route: 065
  14. VALPROATE SODIUM [Suspect]
     Active Substance: VALPROATE SODIUM
     Indication: Schizophrenia
     Dosage: 500 MILLIGRAM, QD (500 MG, 12 HRDAILY)
     Route: 065
  15. VALPROATE SODIUM [Suspect]
     Active Substance: VALPROATE SODIUM
     Dosage: 500 MILLIGRAM, AM (500MG OM - ONCE EVERY MORNING)
     Route: 065
  16. VALPROATE SODIUM [Suspect]
     Active Substance: VALPROATE SODIUM
     Dosage: 700 MILLIGRAM, QD
     Route: 065
  17. VALPROATE SODIUM [Suspect]
     Active Substance: VALPROATE SODIUM
     Dosage: UNK, 500MG OM 700MG ON
     Route: 065
  18. VALPROATE SODIUM [Suspect]
     Active Substance: VALPROATE SODIUM
     Dosage: 500 MILLIGRAM, AM (500MG OM - ONCE EVERY MORNING)
     Route: 065
  19. VALPROATE SODIUM [Suspect]
     Active Substance: VALPROATE SODIUM
     Dosage: 500 MILLIGRAM, AM (500 MILLIGRAM, AM ((12 HRS)) )
     Route: 065
  20. VALPROATE SODIUM [Suspect]
     Active Substance: VALPROATE SODIUM
     Dosage: 700 MILLIGRAM, PM (700 MG, QD (700 MILLIGRAM, PM (12 HRS) )
     Route: 065
  21. VALPROATE SODIUM [Suspect]
     Active Substance: VALPROATE SODIUM
     Dosage: 700 MILLIGRAM, HS (700 MG, ONCE PER DAY( EVERY NIGHT) )
     Route: 065
  22. VALPROATE SODIUM [Suspect]
     Active Substance: VALPROATE SODIUM
     Dosage: UNK
     Route: 065
  23. VALPROATE SODIUM [Suspect]
     Active Substance: VALPROATE SODIUM
     Dosage: 1200 MILLIGRAM, QD Q12H  (500MG OM 700MG ON)
     Route: 065
  24. VALPROATE SODIUM [Suspect]
     Active Substance: VALPROATE SODIUM
     Dosage: BID (Q12H (500 MG EVERY MORNING, 700 MG EVERY NIGHT))
     Route: 065
  25. VALPROATE SODIUM [Suspect]
     Active Substance: VALPROATE SODIUM
     Dosage: 700 MILLIGRAM, BID
     Route: 065
  26. VALPROATE SODIUM [Suspect]
     Active Substance: VALPROATE SODIUM
     Dosage: 700 MG, BID
     Route: 065
  27. VALPROATE SODIUM [Suspect]
     Active Substance: VALPROATE SODIUM
     Dosage: UNK, Q12H (500 MG EVERY MORNING, 700 MG EVERY NIGHT)
     Route: 065
  28. VALPROATE SODIUM [Suspect]
     Active Substance: VALPROATE SODIUM
     Dosage: 700 MG, QD (700 MILLIGRAM, PM (12 HRS)
     Route: 065
  29. VALPROATE SODIUM [Suspect]
     Active Substance: VALPROATE SODIUM
     Dosage: 500 MG, QD (ONCE EVERY MORNING)
     Route: 065
  30. VALPROATE SODIUM [Suspect]
     Active Substance: VALPROATE SODIUM
     Dosage: 700 MG, QHSONCE A DAY, EVERY NIGHT
     Route: 065
  31. VALPROATE SODIUM [Suspect]
     Active Substance: VALPROATE SODIUM
     Dosage: 500 MG, QD ((12 HRS))
     Route: 065
  32. CLONAZEPAM [Suspect]
     Active Substance: CLONAZEPAM
     Indication: Schizophrenia
     Dosage: 5 MILLIGRAM, QD (5 MG, DAILY)
     Route: 065
  33. CLONAZEPAM [Suspect]
     Active Substance: CLONAZEPAM
     Dosage: 0.5 MILLIGRAM, ONCE A DAY ( PM)
     Route: 065
  34. CLONAZEPAM [Suspect]
     Active Substance: CLONAZEPAM
     Dosage: 1 MILLIGRAM, QD (1 MG, ONCE PER DAY) (0.5 MILLIGRAM, PM)
     Route: 065
  35. CLONAZEPAM [Suspect]
     Active Substance: CLONAZEPAM
     Dosage: 0.5 MILLIGRAM, HS (0.5 MG, QD (EVERY NIGHT))
     Route: 065
  36. CLONAZEPAM [Suspect]
     Active Substance: CLONAZEPAM
     Dosage: 0.5 MILLIGRAM (0.5 MG, ON)
     Route: 065
  37. CLONAZEPAM [Suspect]
     Active Substance: CLONAZEPAM
     Dosage: 0.5 MILLIGRAM, QD(0.5 MG, ONCE PER DAY (0.5 MG, ON))
     Route: 065
  38. CLONAZEPAM [Suspect]
     Active Substance: CLONAZEPAM
     Dosage: 5 MILLIGRAM, QD
     Route: 065
  39. CLONAZEPAM [Suspect]
     Active Substance: CLONAZEPAM
     Dosage: 1 MILLIGRAM, QD (0.5 MG,PM)
     Route: 065

REACTIONS (3)
  - Neutropenia [Recovered/Resolved]
  - Off label use [Unknown]
  - Intentional product misuse [Unknown]

NARRATIVE: CASE EVENT DATE: 20180809
